FAERS Safety Report 16734149 (Version 1)
Quarter: 2019Q3

REPORT INFORMATION
  Report Type: Spontaneous
  Country: IT (occurrence: IT)
  Receive Date: 20190823
  Receipt Date: 20190823
  Transmission Date: 20191005
  Serious: Yes (Hospitalization)
  Sender: FDA-Public Use
  Company Number: IT-MYLANLABS-2019M1077669

PATIENT
  Age: 55 Year
  Sex: Male

DRUGS (3)
  1. FONDAPARINUX [Suspect]
     Active Substance: FONDAPARINUX
     Indication: DEEP VEIN THROMBOSIS
     Dosage: 2.5 MILLIGRAM, QD
     Route: 058
     Dates: start: 20181201, end: 20190801
  2. PANTORC [Concomitant]
     Active Substance: PANTOPRAZOLE SODIUM
  3. ZOLOFT [Concomitant]
     Active Substance: SERTRALINE HYDROCHLORIDE
     Dosage: UNK

REACTIONS (3)
  - Oedema peripheral [Recovering/Resolving]
  - Incorrect dose administered [Unknown]
  - Product use issue [Unknown]

NARRATIVE: CASE EVENT DATE: 20190801
